FAERS Safety Report 10695484 (Version 1)
Quarter: 2014Q4

REPORT INFORMATION
  Report Type: Spontaneous
  Country: US (occurrence: None)
  Receive Date: 20141216
  Receipt Date: 20141216
  Transmission Date: 20150529
  Serious: Yes (Other)
  Sender: FDA-Public Use
  Company Number: 2014005824

PATIENT
  Age: 68 Year
  Sex: Male
  Weight: 95.7 kg

DRUGS (8)
  1. SITAGLIPTIN PHOSPHATE [Concomitant]
     Active Substance: SITAGLIPTIN PHOSPHATE
  2. SERTRALINE [Concomitant]
     Active Substance: SERTRALINE HYDROCHLORIDE
  3. ATENOLOL. [Concomitant]
     Active Substance: ATENOLOL
  4. NEUPRO [Suspect]
     Active Substance: ROTIGOTINE
     Indication: RESTLESS LEGS SYNDROME
     Route: 062
     Dates: start: 20140709, end: 20140715
  5. JANMUET (METFORMIN HYDROCHLORIDE) [Concomitant]
  6. KLOR-CON [Concomitant]
     Active Substance: POTASSIUM CHLORIDE
  7. SYNTHROID [Concomitant]
     Active Substance: LEVOTHYROXINE SODIUM
  8. ROPINIROLE. [Concomitant]
     Active Substance: ROPINIROLE

REACTIONS (6)
  - Hallucination [None]
  - Drug ineffective [None]
  - Insomnia [None]
  - Headache [None]
  - Hiccups [None]
  - Feeling abnormal [None]

NARRATIVE: CASE EVENT DATE: 20140709
